FAERS Safety Report 9499064 (Version 1)
Quarter: 2013Q3

REPORT INFORMATION
  Report Type: Spontaneous
  Country: US (occurrence: US)
  Receive Date: 20130904
  Receipt Date: 20130904
  Transmission Date: 20140515
  Serious: Yes (Other)
  Sender: FDA-Public Use
  Company Number: US-BAXTER-2013BAX035039

PATIENT
  Age: 9 Year
  Sex: Female

DRUGS (1)
  1. SEVOFLURANE, USP [Suspect]
     Indication: ANAESTHESIA
     Route: 065

REACTIONS (4)
  - Encephalopathy [Recovered/Resolved with Sequelae]
  - Dysarthria [Unknown]
  - Dystonia [Not Recovered/Not Resolved]
  - Parkinsonism [Not Recovered/Not Resolved]
